FAERS Safety Report 7726329-7 (Version None)
Quarter: 2011Q3

REPORT INFORMATION
  Report Type: 
  Country: None (occurrence: None)
  Receive Date: 20110902
  Receipt Date: 20110831
  Transmission Date: 20111222
  Serious: Yes (Other)
  Sender: FDA-Public Use
  Company Number: GB-PFIZER INC-2011203974

PATIENT
  Age: 39 Year
  Sex: Male

DRUGS (1)
  1. VARENICLINE TARTRATE [Suspect]

REACTIONS (3)
  - VIOLENCE-RELATED SYMPTOM [None]
  - MEMORY IMPAIRMENT [None]
  - DEPRESSION [None]
